FAERS Safety Report 12776804 (Version 1)
Quarter: 2016Q3

REPORT INFORMATION
  Report Type: Spontaneous
  Country: US (occurrence: US)
  Receive Date: 20160923
  Receipt Date: 20160923
  Transmission Date: 20161109
  Serious: Yes (Other)
  Sender: FDA-Public Use
  Company Number: US-KEDRION-2015047

PATIENT
  Age: 23 Year
  Sex: Female

DRUGS (2)
  1. RHOGAM [Suspect]
     Active Substance: HUMAN RHO(D) IMMUNE GLOBULIN
     Indication: HAEMORRHAGE
     Dates: start: 201412, end: 201412
  2. RHOGAM [Suspect]
     Active Substance: HUMAN RHO(D) IMMUNE GLOBULIN
     Indication: RHESUS ANTIGEN NEGATIVE
     Dates: start: 20150325, end: 20150325

REACTIONS (2)
  - Anaphylactic reaction [Recovered/Resolved]
  - Anaphylactic reaction [Recovered/Resolved]

NARRATIVE: CASE EVENT DATE: 201412
